FAERS Safety Report 16542699 (Version 1)
Quarter: 2019Q3

REPORT INFORMATION
  Report Type: Spontaneous
  Country: US (occurrence: US)
  Receive Date: 20190709
  Receipt Date: 20190709
  Transmission Date: 20191004
  Serious: No
  Sender: FDA-Public Use
  Company Number: US-GLAXOSMITHKLINE-US2019AMR120728

PATIENT
  Sex: Female

DRUGS (4)
  1. EPIVIR HBV [Suspect]
     Active Substance: LAMIVUDINE
     Indication: LIVER TRANSPLANT
  2. EPIVIR HBV [Suspect]
     Active Substance: LAMIVUDINE
     Indication: CHRONIC HEPATITIS B
  3. DEMEROL [Suspect]
     Active Substance: MEPERIDINE HYDROCHLORIDE
     Indication: PAIN
     Dosage: UNK
     Route: 065
  4. EPIVIR HBV [Suspect]
     Active Substance: LAMIVUDINE
     Indication: RENAL TRANSPLANT
     Dosage: UNK
     Route: 048

REACTIONS (4)
  - Diarrhoea [Unknown]
  - Abdominal pain upper [Unknown]
  - Pain [Unknown]
  - Nausea [Unknown]
